FAERS Safety Report 4578709-9 (Version None)
Quarter: 2005Q1

REPORT INFORMATION
  Report Type: 
  Country: None (occurrence: None)
  Receive Date: 20050209
  Receipt Date: 20050209
  Transmission Date: 20050727
  Serious: No
  Sender: FDA-Public Use
  Company Number: None

PATIENT
  Sex: Female
  Weight: 55.7924 kg

DRUGS (1)
  1. TRANSDERM SCOP [Suspect]
     Indication: PROPHYLAXIS AGAINST MOTION SICKNESS
     Dosage: 1 PATCH   Q 72 HOURS   TRANSDERMAL
     Route: 062
     Dates: start: 20041217, end: 20041221

REACTIONS (5)
  - ADVERSE DRUG REACTION [None]
  - AMNESIA [None]
  - DISORIENTATION [None]
  - HALLUCINATION [None]
  - MENTAL STATUS CHANGES [None]
